FAERS Safety Report 9335635 (Version 3)
Quarter: 2013Q4

REPORT INFORMATION
  Report Type: Spontaneous
  Country: US (occurrence: US)
  Receive Date: 20130605
  Receipt Date: 20131210
  Transmission Date: 20140711
  Serious: Yes (Hospitalization)
  Sender: FDA-Public Use
  Company Number: US-B.I. PHARMACEUTICALS,INC./RIDGEFIELD-2013-BI-15778BP

PATIENT
  Sex: Female
  Weight: 73.14 kg

DRUGS (7)
  1. PRADAXA [Suspect]
     Indication: PERIPHERAL ARTERIAL OCCLUSIVE DISEASE
     Dosage: 300 MG
     Route: 048
     Dates: start: 20120119, end: 20120214
  2. EFFIENT [Suspect]
     Dosage: 10 MG
     Route: 048
     Dates: end: 20120214
  3. ASPIRIN [Suspect]
     Indication: ARTERIAL DISORDER
     Dosage: 81 MG
     Dates: end: 20120214
  4. HYDROCODONE [Concomitant]
  5. LASIX [Concomitant]
     Dosage: 40 MG
  6. GLIPIZIDE [Concomitant]
     Dosage: 5 MG
  7. METFORMIN [Concomitant]
     Dosage: 2000 MG
     Route: 048

REACTIONS (2)
  - Haemorrhagic stroke [Unknown]
  - Coagulopathy [Unknown]
